FAERS Safety Report 4780247-5 (Version None)
Quarter: 2005Q3

REPORT INFORMATION
  Report Type: 
  Country: None (occurrence: None)
  Receive Date: 20050927
  Receipt Date: 20050829
  Transmission Date: 20060218
  Serious: Yes (Hospitalization, Other)
  Sender: FDA-Public Use
  Company Number: MX-BRISTOL-MYERS SQUIBB COMPANY-13092663

PATIENT
  Age: 53 Year
  Sex: Female

DRUGS (2)
  1. EXCEDRIN (MIGRAINE) [Suspect]
  2. EXCEDRIN (MIGRAINE) [Suspect]

REACTIONS (3)
  - DRUG INEFFECTIVE [None]
  - INTRACRANIAL ANEURYSM [None]
  - MIGRAINE [None]
